FAERS Safety Report 13481196 (Version 3)
Quarter: 2018Q1

REPORT INFORMATION
  Report Type: Report from Study
  Country: US (occurrence: US)
  Receive Date: 20170424
  Receipt Date: 20180117
  Transmission Date: 20180508
  Serious: No
  Sender: FDA-Public Use
  Company Number: US-AMGEN-USASL2017043284

PATIENT
  Age: 69 Year
  Sex: Male

DRUGS (4)
  1. ZETIA [Concomitant]
     Active Substance: EZETIMIBE
  2. KLONOPIN [Concomitant]
     Active Substance: CLONAZEPAM
  3. REPATHA [Suspect]
     Active Substance: EVOLOCUMAB
     Indication: HYPERCHOLESTEROLAEMIA
     Dosage: 140 MG, Q2WK
     Route: 065
  4. SEROQUEL [Concomitant]
     Active Substance: QUETIAPINE FUMARATE

REACTIONS (9)
  - Limb injury [Not Recovered/Not Resolved]
  - Adverse reaction [Recovered/Resolved]
  - Wrong technique in product usage process [Unknown]
  - Influenza like illness [Recovered/Resolved]
  - Therapeutic response unexpected [Unknown]
  - Headache [Unknown]
  - Injection site pain [Recovered/Resolved]
  - Visual impairment [Unknown]
  - Gait disturbance [Not Recovered/Not Resolved]

NARRATIVE: CASE EVENT DATE: 201703
